FAERS Safety Report 7535374-6 (Version None)
Quarter: 2011Q2

REPORT INFORMATION
  Report Type: 
  Country: None (occurrence: None)
  Receive Date: 20110609
  Receipt Date: 20080417
  Transmission Date: 20111010
  Serious: Yes (Hospitalization)
  Sender: FDA-Public Use
  Company Number: PHMT2006CA01500

PATIENT
  Sex: Female

DRUGS (2)
  1. SANDOSTATIN LAR [Suspect]
     Indication: CARCINOID SYNDROME
     Dosage: 40 MG, UNK
     Route: 030
     Dates: start: 20040101, end: 20060810
  2. SANDOSTATIN LAR [Suspect]
     Dosage: 40 MG, UNK
     Route: 030
     Dates: start: 20061005

REACTIONS (1)
  - DEVICE RELATED INFECTION [None]
